FAERS Safety Report 19027938 (Version 1)
Quarter: 2021Q1

REPORT INFORMATION
  Report Type: Spontaneous
  Country: JP (occurrence: JP)
  Receive Date: 20210318
  Receipt Date: 20210318
  Transmission Date: 20210420
  Serious: Yes (Other)
  Sender: FDA-Public Use
  Company Number: JP-BAUSCH-BL-2021-007767

PATIENT
  Age: 26 Year
  Sex: Male

DRUGS (2)
  1. MESALAZINE [Suspect]
     Active Substance: MESALAMINE
     Dosage: STARTED AGAIN
     Route: 065
  2. MESALAZINE [Suspect]
     Active Substance: MESALAMINE
     Indication: COLITIS ULCERATIVE
     Route: 065

REACTIONS (5)
  - Myocarditis [Recovered/Resolved]
  - Traumatic lung injury [Recovering/Resolving]
  - Therapy non-responder [Unknown]
  - Drug hypersensitivity [Recovering/Resolving]
  - Cardiac arrest [Recovered/Resolved]
